FAERS Safety Report 9858720 (Version 1)
Quarter: 2014Q1

REPORT INFORMATION
  Report Type: Spontaneous
  Country: SG (occurrence: SG)
  Receive Date: 20140131
  Receipt Date: 20140131
  Transmission Date: 20141002
  Serious: Yes (Death)
  Sender: FDA-Public Use
  Company Number: SG-SA-2014SA009543

PATIENT
  Age: 74 Year
  Sex: Male
  Weight: 44.8 kg

DRUGS (1)
  1. DOCETAXEL [Suspect]
     Indication: NON-SMALL CELL LUNG CANCER METASTATIC
     Route: 042
     Dates: start: 20131021, end: 20131021

REACTIONS (3)
  - Oedema [Fatal]
  - Asthenia [Fatal]
  - Dyspnoea [Fatal]
